FAERS Safety Report 5839439-6 (Version None)
Quarter: 2008Q3

REPORT INFORMATION
  Report Type: 
  Country: None (occurrence: None)
  Receive Date: 20080807
  Receipt Date: 20080804
  Transmission Date: 20090109
  Serious: Yes (Other)
  Sender: FDA-Public Use
  Company Number: LTI2008A00231

PATIENT
  Age: 82 Year
  Sex: Female

DRUGS (1)
  1. ACTOS [Suspect]
     Indication: TYPE 2 DIABETES MELLITUS
     Dosage: 15 MG (15 MG, 1 IN 1 D) ORAL
     Route: 048

REACTIONS (4)
  - GRANULOCYTOSIS [None]
  - LEUKOCYTOSIS [None]
  - MYELOPROLIFERATIVE DISORDER [None]
  - POLYCYTHAEMIA [None]
